FAERS Safety Report 17394577 (Version 1)
Quarter: 2020Q1

REPORT INFORMATION
  Report Type: Spontaneous
  Country: US (occurrence: US)
  Receive Date: 20200210
  Receipt Date: 20200210
  Transmission Date: 20200409
  Serious: No
  Sender: FDA-Public Use
  Company Number: US-ALKEM LABORATORIES LIMITED-US-ALKEM-2019-08552

PATIENT
  Age: 85 Year
  Sex: Female

DRUGS (1)
  1. GABAPENTIN. [Suspect]
     Active Substance: GABAPENTIN
     Indication: NEURALGIA
     Dosage: 100 MG IN MORNING, 100 MG IN THE NOON AND 300 MG AT NIGHT
     Route: 065
     Dates: start: 201905

REACTIONS (3)
  - Off label use [Unknown]
  - Insomnia [Unknown]
  - Muscle spasms [Unknown]
